FAERS Safety Report 9708925 (Version 1)
Quarter: 2013Q4

REPORT INFORMATION
  Report Type: Spontaneous
  Country: US (occurrence: US)
  Receive Date: 20131125
  Receipt Date: 20131125
  Transmission Date: 20140711
  Serious: Yes (Other)
  Sender: FDA-Public Use
  Company Number: US-ACTAVIS-2013-21082

PATIENT
  Age: 26 Year
  Sex: Female

DRUGS (1)
  1. CRINONE (WATSON LABORATORIES) [Suspect]
     Indication: PRODUCT USED FOR UNKNOWN INDICATION
     Dosage: 1X A DAY
     Route: 065

REACTIONS (1)
  - Abortion spontaneous [Unknown]
